FAERS Safety Report 24349497 (Version 2)
Quarter: 2024Q4

REPORT INFORMATION
  Report Type: Spontaneous
  Country: CH (occurrence: CH)
  Receive Date: 20240923
  Receipt Date: 20241005
  Transmission Date: 20250114
  Serious: Yes (Life-Threatening)
  Sender: ACCORD
  Company Number: CH-MLMSERVICE-20240904-PI184300-00140-1

PATIENT
  Age: 61 Year
  Sex: Female

DRUGS (4)
  1. ETOPOSIDE [Suspect]
     Active Substance: ETOPOSIDE
     Indication: Small cell lung cancer
     Dosage: ETOPOSIDE PHOSPHATE 100 MG/M2 (DOSE PROTOCOL 190 MG)
     Dates: start: 2019
  2. CISPLATIN [Concomitant]
     Active Substance: CISPLATIN
     Indication: Metastases to central nervous system
     Dosage: 25 MG/M2 (DOSE PROTOCOL 45 MG)
     Dates: start: 2019
  3. CISPLATIN [Concomitant]
     Active Substance: CISPLATIN
     Indication: Small cell lung cancer
     Dosage: 25 MG/M2 (DOSE PROTOCOL 45 MG)
     Dates: start: 2019
  4. ETOPOSIDE [Suspect]
     Active Substance: ETOPOSIDE
     Indication: Metastases to central nervous system
     Dosage: ETOPOSIDE PHOSPHATE 100 MG/M2 (DOSE PROTOCOL 190 MG)
     Dates: start: 2019

REACTIONS (1)
  - Haematotoxicity [Unknown]

NARRATIVE: CASE EVENT DATE: 20190101
